FAERS Safety Report 10769158 (Version 1)
Quarter: 2015Q1

REPORT INFORMATION
  Report Type: Spontaneous
  Country: IT (occurrence: IT)
  Receive Date: 20150206
  Receipt Date: 20150206
  Transmission Date: 20150721
  Serious: Yes (Life-Threatening)
  Sender: FDA-Public Use
  Company Number: IT-TEVA-537753ISR

PATIENT
  Age: 89 Year
  Sex: Male

DRUGS (8)
  1. PRONTINAL - 0,8 MG/2 ML SOSPENSIONE DA NEBULIZZARE [Concomitant]
     Indication: PRODUCT USED FOR UNKNOWN INDICATION
     Dosage: FORM: NEBULISER SUSPENSION
     Dates: start: 20150109, end: 20150115
  2. COUMADIN [Interacting]
     Active Substance: WARFARIN SODIUM
     Indication: CEREBROVASCULAR ACCIDENT PROPHYLAXIS
     Dosage: 17.5 MG WEEKLY
     Route: 048
     Dates: start: 20090518, end: 20150118
  3. AMIODAR - 200 MG COMPRESSE [Concomitant]
     Indication: PRODUCT USED FOR UNKNOWN INDICATION
  4. MOXIFLOXACINA TEVA - 400 MG COMPRESSE RIVESTITE CON FILM [Suspect]
     Active Substance: MOXIFLOXACIN HYDROCHLORIDE
     Indication: BRONCHITIS BACTERIAL
     Dosage: 400 MG DAILY
     Route: 048
     Dates: start: 20150113, end: 20150117
  5. URBASON - 4 MG COMPRESSE - SANOFI S.P.A. [Interacting]
     Active Substance: METHYLPREDNISOLONE
     Indication: ASTHMA
     Dosage: 14 MG WEEKLY
     Route: 048
     Dates: start: 20150113, end: 20150118
  6. AEROLID - 1 MG/1 ML SOLUZIONE DA NEBULIZZARE [Concomitant]
     Indication: PRODUCT USED FOR UNKNOWN INDICATION
     Dosage: 2 ML
     Dates: start: 20150109, end: 20150115
  7. TRITTICO - 75 MG COMPRESSE A RILASCIO PROLUNGATO [Concomitant]
     Indication: PRODUCT USED FOR UNKNOWN INDICATION
     Dosage: 25 MG
  8. XANAX - 0,25 MG COMPRESSE [Concomitant]
     Indication: PRODUCT USED FOR UNKNOWN INDICATION

REACTIONS (2)
  - International normalised ratio increased [Recovered/Resolved]
  - Drug interaction [Recovered/Resolved]

NARRATIVE: CASE EVENT DATE: 20150119
